FAERS Safety Report 9931149 (Version 1)
Quarter: 2014Q1

REPORT INFORMATION
  Report Type: Spontaneous
  Country: US (occurrence: US)
  Receive Date: 20140227
  Receipt Date: 20140227
  Transmission Date: 20141002
  Serious: Yes (Other)
  Sender: FDA-Public Use
  Company Number: US-SUN PHARMACEUTICAL INDUSTRIES LTD-2014SUN00413

PATIENT
  Age: 58 Year
  Sex: Female

DRUGS (2)
  1. LEVETIRACETAM EXTENDED-RELEASE TABLETS, 750 MG [Suspect]
     Indication: CONVULSION
     Dosage: 750 MG, BID
     Route: 065
  2. LORAZEPAM [Concomitant]
     Dosage: 1 MG, AT NIGHT

REACTIONS (1)
  - Mania [Recovered/Resolved]
